FAERS Safety Report 9174405 (Version 1)
Quarter: 2013Q1

REPORT INFORMATION
  Report Type: Spontaneous
  Country: FR (occurrence: None)
  Receive Date: 20130318
  Receipt Date: 20130318
  Transmission Date: 20140127
  Serious: Yes (Life-Threatening, Hospitalization)
  Sender: FDA-Public Use
  Company Number: 1636343

PATIENT
  Age: 75 Year
  Sex: Female

DRUGS (3)
  1. (OXALIPLATIN) [Suspect]
     Indication: PROPHYLACTIC CHEMOTHERAPY
     Dosage: 140 MG MILLIGRAM(S) (1 HOUR)
     Route: 042
     Dates: start: 20120802, end: 20121024
  2. (EXFORGE) [Concomitant]
  3. (LEVOTHYROX) [Concomitant]

REACTIONS (7)
  - Malaise [None]
  - Paraesthesia [None]
  - Bradycardia [None]
  - Hypotension [None]
  - Cardiac arrest [None]
  - Anaphylactic shock [None]
  - Hypokalaemia [None]
